FAERS Safety Report 9408382 (Version 1)
Quarter: 2013Q3

REPORT INFORMATION
  Report Type: Spontaneous
  Country: NL (occurrence: NL)
  Receive Date: 20130718
  Receipt Date: 20130718
  Transmission Date: 20140515
  Serious: Yes (Hospitalization)
  Sender: FDA-Public Use
  Company Number: NL-ALEXION PHARMACEUTICALS INC.-A201301621

PATIENT
  Age: 23 Year
  Sex: Male

DRUGS (5)
  1. SOLIRIS 300MG [Suspect]
     Indication: PAROXYSMAL NOCTURNAL HAEMOGLOBINURIA
     Dosage: 600 MG, QW
     Route: 042
     Dates: start: 20130502
  2. SOLIRIS 300MG [Suspect]
     Dosage: 900 MG, Q2W
     Route: 042
  3. FOLIC ACID [Concomitant]
     Dosage: 5 MG, QD
     Route: 048
  4. NADROPARIN [Concomitant]
     Dosage: 11400 E/D
     Route: 058
  5. FERROFUMERATE [Concomitant]
     Dosage: 200 MG, QD
     Route: 048

REACTIONS (5)
  - Anal abscess [Recovered/Resolved]
  - Blood lactate dehydrogenase increased [Unknown]
  - Haemoglobin decreased [Unknown]
  - Thrombocytopenia [Unknown]
  - Leukopenia [Unknown]
